FAERS Safety Report 10244839 (Version 1)
Quarter: 2014Q2

REPORT INFORMATION
  Report Type: Spontaneous
  Country: US (occurrence: US)
  Receive Date: 20140618
  Receipt Date: 20140618
  Transmission Date: 20141212
  Serious: No
  Sender: FDA-Public Use
  Company Number: US-TARO-2014P1003273

PATIENT
  Age: 40 Year
  Sex: Female
  Weight: 63.5 kg

DRUGS (10)
  1. ACETAZOLAMIDE TABLETS 250 MG [Suspect]
     Indication: INTRACRANIAL PRESSURE INCREASED
     Route: 048
     Dates: start: 20140227, end: 201404
  2. ACETAZOLAMIDE TABLETS 250 MG [Suspect]
     Indication: INTRACRANIAL PRESSURE INCREASED
     Route: 048
     Dates: start: 201404
  3. MIDODRINE [Concomitant]
  4. ZANTAC [Concomitant]
  5. HYDROXYZINE [Concomitant]
  6. MULTIVITAMIN [Concomitant]
  7. VITAMIN B COMPLEX [Concomitant]
  8. VITAMIN C [Concomitant]
  9. VITAMIN D [Concomitant]
  10. CALCIUM [Concomitant]

REACTIONS (3)
  - Pain [Not Recovered/Not Resolved]
  - Paraesthesia [Not Recovered/Not Resolved]
  - Drug ineffective for unapproved indication [Not Recovered/Not Resolved]
